FAERS Safety Report 10613319 (Version 2)
Quarter: 2014Q4

REPORT INFORMATION
  Report Type: Spontaneous
  Country: JP (occurrence: JP)
  Receive Date: 20141128
  Receipt Date: 20141128
  Transmission Date: 20150529
  Serious: Yes (Hospitalization)
  Sender: FDA-Public Use
  Company Number: JP-ROCHE-1446570

PATIENT
  Age: 64 Year
  Sex: Female
  Weight: 54 kg

DRUGS (9)
  1. FAROM [Suspect]
     Active Substance: FAROPENEM SODIUM
     Indication: ANKLE ARTHROPLASTY
     Route: 048
     Dates: start: 20140630, end: 20140803
  2. BONALON [Concomitant]
     Active Substance: ALENDRONATE SODIUM
     Route: 048
  3. PREDONINE [Concomitant]
     Active Substance: PREDNISOLONE\PREDNISOLONE ACETATE\PREDNISOLONE SODIUM SUCCINATE
     Route: 048
     Dates: start: 200006
  4. RHEUMATREX [Concomitant]
     Active Substance: METHOTREXATE SODIUM
     Route: 048
     Dates: start: 200104
  5. ACTEMRA [Suspect]
     Active Substance: TOCILIZUMAB
     Indication: RHEUMATOID ARTHRITIS
     Dosage: DOSAGE IS UNCERTAIN.
     Route: 065
     Dates: start: 20140801, end: 20140801
  6. EDIROL [Concomitant]
     Active Substance: ELDECALCITOL
     Route: 048
  7. MICARDIS [Concomitant]
     Active Substance: TELMISARTAN
     Route: 048
  8. GLAKAY [Concomitant]
     Route: 048
  9. ADALAT CC [Concomitant]
     Active Substance: NIFEDIPINE
     Route: 048

REACTIONS (2)
  - Skin ulcer [Unknown]
  - Enterocolitis haemorrhagic [Recovering/Resolving]

NARRATIVE: CASE EVENT DATE: 20140801
